FAERS Safety Report 18788055 (Version 1)
Quarter: 2021Q1

REPORT INFORMATION
  Report Type: Spontaneous
  Country: US (occurrence: US)
  Receive Date: 20210126
  Receipt Date: 20210126
  Transmission Date: 20210419
  Serious: No
  Sender: FDA-Public Use
  Company Number: None

PATIENT
  Sex: Female
  Weight: 66.6 kg

DRUGS (1)
  1. REVLIMID [Suspect]
     Active Substance: LENALIDOMIDE
     Indication: PLASMA CELL MYELOMA
     Dosage: ?          QUANTITY:1 CAPSULE(S);OTHER FREQUENCY:EVERY OTHER DAY;?
     Dates: start: 20201230, end: 20210125

REACTIONS (6)
  - Cystitis [None]
  - Dyspnoea [None]
  - Anaemia [None]
  - Onychoclasis [None]
  - Protein albumin ratio decreased [None]
  - Nausea [None]
